FAERS Safety Report 8455465-5 (Version None)
Quarter: 2012Q2

REPORT INFORMATION
  Report Type: 
  Country: None (occurrence: None)
  Receive Date: 20120614
  Receipt Date: 20120530
  Transmission Date: 20120825
  Serious: Yes (Other)
  Sender: FDA-Public Use
  Company Number: 2012P1035602

PATIENT
  Sex: Female

DRUGS (1)
  1. PHENAZOPYRIDINE HCL TAB [Suspect]
     Indication: URINARY TRACT INFECTION

REACTIONS (5)
  - EYE SWELLING [None]
  - URTICARIA [None]
  - ANGIOEDEMA [None]
  - RASH GENERALISED [None]
  - LIP SWELLING [None]
